FAERS Safety Report 23611671 (Version 1)
Quarter: 2024Q1

REPORT INFORMATION
  Report Type: Spontaneous
  Country: GB (occurrence: GB)
  Receive Date: 20240308
  Receipt Date: 20240308
  Transmission Date: 20240410
  Serious: Yes (Hospitalization)
  Sender: FDA-Public Use
  Company Number: None

PATIENT
  Age: 73 Year

DRUGS (10)
  1. WARFARIN [Suspect]
     Active Substance: WARFARIN
     Dosage: TAKE AS PRESCRIBED IN ANTICOAGULANT TREATMENT BOOK
     Route: 065
  2. CALCIUM CARBONATE [Concomitant]
     Active Substance: CALCIUM CARBONATE
     Dosage: COMBINATION PRODUCT WITH COLECALCIFEROL,
  3. POTASSIUM BICARBONATE [Concomitant]
     Active Substance: POTASSIUM BICARBONATE
     Dosage: TIME INTERVAL: AS NECESSARY: ONE OR TWO 5 ML SPOONFULS TO BE TAKEN THREE TIMES A DAY AFTER FOOD A...
  4. CALCIUM CARBONATE\SODIUM ALGINATE\SODIUM BICARBONATE [Concomitant]
     Active Substance: CALCIUM CARBONATE\SODIUM ALGINATE\SODIUM BICARBONATE
     Dosage: 10 - 20 ML TO BE TAKEN AFTER MEALS AND AT BEDTIME
  5. DOXAZOSIN [Concomitant]
     Active Substance: DOXAZOSIN MESYLATE
     Dosage: DOSE INCREASED FROM 4MG
  6. FAMOTIDINE [Concomitant]
     Active Substance: FAMOTIDINE
     Dosage: NOT TAKING,
  7. QUININE SULFATE [Concomitant]
     Active Substance: QUININE SULFATE
     Dosage: AT NIGHT,
  8. CODEINE [Concomitant]
     Active Substance: CODEINE
     Dosage: ONE OR TWO TO BE TAKEN EVERY FOUR HOURS WHEN NECESSARY. MAXIMUM 8 IN?24 HOURS
  9. ACETAMINOPHEN [Concomitant]
     Active Substance: ACETAMINOPHEN
     Indication: Pain
     Dosage: TIME INTERVAL: AS NECESSARY: ONE OR TWO TO BE TAKEN UP TO FOUR TIMES A DAY IF NEEDED
  10. CHOLECALCIFEROL [Concomitant]
     Active Substance: CHOLECALCIFEROL
     Dosage: COMBINATION PRODUCT WITH CALCIUM CARBONATE,

REACTIONS (1)
  - Epistaxis [Unknown]
